FAERS Safety Report 7546210-6 (Version None)
Quarter: 2011Q2

REPORT INFORMATION
  Report Type: 
  Country: None (occurrence: None)
  Receive Date: 20110614
  Receipt Date: 20010307
  Transmission Date: 20111010
  Serious: Yes (Death)
  Sender: FDA-Public Use
  Company Number: PHBS2001ES02485

PATIENT
  Age: 64 Year
  Sex: Female

DRUGS (2)
  1. TEGRETOL [Suspect]
     Dosage: 200 MG, QD
     Route: 048
     Dates: start: 20000810, end: 20000810
  2. SINOGAN [Concomitant]
     Dates: start: 20000810

REACTIONS (1)
  - CARDIAC ARREST [None]
